FAERS Safety Report 10410334 (Version 1)
Quarter: 2014Q3

REPORT INFORMATION
  Report Type: Spontaneous
  Country: US (occurrence: US)
  Receive Date: 20140826
  Receipt Date: 20140826
  Transmission Date: 20150326
  Serious: Yes (Death)
  Sender: FDA-Public Use
  Company Number: US-INCYTE CORPORATION-2014IN002427

PATIENT
  Age: 83 Year
  Sex: Female
  Weight: 76.19 kg

DRUGS (13)
  1. BENADRYL [Concomitant]
     Active Substance: DIPHENHYDRAMINE HYDROCHLORIDE
  2. COPPER [Concomitant]
     Active Substance: COPPER
  3. GENTAMICIN [Concomitant]
     Active Substance: GENTAMICIN
  4. ALBUTEROL                          /00139501/ [Concomitant]
     Active Substance: ALBUTEROL
  5. JAKAFI [Suspect]
     Active Substance: RUXOLITINIB
     Dosage: 5 MG, BID (TWICE PER DAY)
     Route: 048
     Dates: start: 20120618, end: 20140822
  6. BIAXIN [Concomitant]
     Active Substance: CLARITHROMYCIN
  7. MONUROL [Concomitant]
     Active Substance: FOSFOMYCIN TROMETHAMINE
  8. VIACTIV                            /00751501/ [Concomitant]
  9. EPIPEN [Concomitant]
     Active Substance: EPINEPHRINE
  10. FLUTICASONE [Concomitant]
     Active Substance: FLUTICASONE\FLUTICASONE PROPIONATE
  11. RECLAST [Concomitant]
     Active Substance: ZOLEDRONIC ACID
  12. LACTAID [Concomitant]
     Active Substance: LACTASE
  13. PROBIOTIC                          /06395501/ [Concomitant]

REACTIONS (1)
  - Death [Fatal]

NARRATIVE: CASE EVENT DATE: 20140822
